FAERS Safety Report 23484121 (Version 1)
Quarter: 2024Q1

REPORT INFORMATION
  Report Type: Report from Study
  Country: IT (occurrence: IT)
  Receive Date: 20240206
  Receipt Date: 20240206
  Transmission Date: 20240409
  Serious: Yes (Death, Hospitalization)
  Sender: FDA-Public Use
  Company Number: IT-ABBVIE-5626171

PATIENT
  Age: 78 Year
  Sex: Male

DRUGS (2)
  1. CARBIDOPA\LEVODOPA [Suspect]
     Active Substance: CARBIDOPA\LEVODOPA
     Indication: Parkinson^s disease
     Dosage: TOTAL DAILY DOSE (MG) : 1492 PUMP SETTING: MD: 5+3 CR: 4,1 (16H), ED: 2
     Route: 050
     Dates: start: 20161219
  2. CARBIDOPA\LEVODOPA [Suspect]
     Active Substance: CARBIDOPA\LEVODOPA

REACTIONS (2)
  - Death [Fatal]
  - Dehydration [Unknown]

NARRATIVE: CASE EVENT DATE: 20230223
